FAERS Safety Report 6716533-9 (Version None)
Quarter: 2010Q2

REPORT INFORMATION
  Report Type: 
  Country: None (occurrence: None)
  Receive Date: 20100507
  Receipt Date: 20100427
  Transmission Date: 20101027
  Serious: Yes (Hospitalization)
  Sender: FDA-Public Use
  Company Number: FR-ELI_LILLY_AND_COMPANY-FR201004007128

PATIENT
  Age: 50 Year
  Sex: Female

DRUGS (7)
  1. PROZAC [Suspect]
     Dosage: 20 MG, DAILY (1/D)
     Route: 048
     Dates: end: 19990901
  2. XANAX [Concomitant]
     Dosage: 3 MG, DAILY (1/D)
     Route: 048
     Dates: end: 19990101
  3. XANAX [Concomitant]
     Dosage: 1.5 MG, DAILY (1/D)
     Dates: start: 19990101
  4. DIANTALVIC [Concomitant]
     Indication: MIGRAINE
     Dosage: UNK, UNK
     Route: 048
     Dates: end: 19990101
  5. DIANTALVIC [Concomitant]
     Dosage: 2 D/F, DAILY (1/D)
     Dates: start: 19990101
  6. ACUPAN [Concomitant]
     Indication: MIGRAINE
     Dosage: 6 D/F, DAILY (1/D)
     Dates: end: 19990901
  7. CACIT [Concomitant]
     Dosage: 2 D/F, DAILY (1/D)
     Route: 048

REACTIONS (4)
  - DIARRHOEA [None]
  - DRUG DEPENDENCE [None]
  - GENERAL PHYSICAL HEALTH DETERIORATION [None]
  - HEADACHE [None]
